FAERS Safety Report 22379527 (Version 1)
Quarter: 2023Q2

REPORT INFORMATION
  Report Type: Spontaneous
  Country: US (occurrence: US)
  Receive Date: 20230529
  Receipt Date: 20230529
  Transmission Date: 20230721
  Serious: Yes (Other)
  Sender: FDA-Public Use
  Company Number: US-PFIZER INC-202300201001

PATIENT
  Age: 35 Year
  Sex: Female

DRUGS (1)
  1. METHOTREXATE SODIUM [Suspect]
     Active Substance: METHOTREXATE SODIUM
     Indication: Rheumatoid arthritis
     Dosage: 1 ML (50MG/2ML PRODUCT AND SHE TAKES 1ML)

REACTIONS (3)
  - Cardiac sarcoidosis [Unknown]
  - Cardiac failure [Unknown]
  - Illness [Not Recovered/Not Resolved]
